FAERS Safety Report 17924121 (Version 1)
Quarter: 2020Q2

REPORT INFORMATION
  Report Type: Spontaneous
  Country: US (occurrence: US)
  Receive Date: 20200622
  Receipt Date: 20200622
  Transmission Date: 20200714
  Serious: Yes (Hospitalization)
  Sender: FDA-Public Use
  Company Number: None

PATIENT
  Age: 63 Year
  Sex: Female
  Weight: 54 kg

DRUGS (11)
  1. CALCIUM [Concomitant]
     Active Substance: CALCIUM
  2. VITAMIN E [Concomitant]
     Active Substance: .ALPHA.-TOCOPHEROL
  3. COQ10 [Concomitant]
     Active Substance: UBIDECARENONE
  4. GABATROL [Concomitant]
  5. FISH OIL [Concomitant]
     Active Substance: FISH OIL
  6. VIT D [Concomitant]
     Active Substance: VITAMIN D NOS
  7. L-THENINE [Concomitant]
  8. NP THYROID [Suspect]
     Active Substance: LEVOTHYROXINE\LIOTHYRONINE
     Indication: HYPOTHYROIDISM
     Dosage: ?          QUANTITY:30 TABLET(S);?
     Route: 048
     Dates: start: 20190301
  9. TUMERIC [Concomitant]
     Active Substance: HERBALS\TURMERIC
  10. CBD OIL [Concomitant]
     Active Substance: CANNABIDIOL\HERBALS
  11. MAGNESIUM [Concomitant]
     Active Substance: MAGNESIUM

REACTIONS (11)
  - Decreased appetite [None]
  - Chest discomfort [None]
  - Panic attack [None]
  - Tremor [None]
  - Paraesthesia [None]
  - Hyperhidrosis [None]
  - Palpitations [None]
  - Blood pressure increased [None]
  - Weight decreased [None]
  - Headache [None]
  - Nausea [None]

NARRATIVE: CASE EVENT DATE: 20200301
